FAERS Safety Report 6359761-7 (Version None)
Quarter: 2009Q3

REPORT INFORMATION
  Report Type: 
  Country: None (occurrence: None)
  Receive Date: 20090917
  Receipt Date: 20090907
  Transmission Date: 20100115
  Serious: Yes (Other)
  Sender: FDA-Public Use
  Company Number: GB-LLY01-GB200609004685

PATIENT
  Sex: Female
  Weight: 58 kg

DRUGS (4)
  1. ZYPREXA [Suspect]
     Indication: AGITATION
     Dosage: 10 MG, UNK
     Route: 048
     Dates: start: 20060801, end: 20060815
  2. ZYPREXA [Suspect]
     Dosage: 2.5 MG, DAILY (1/D)
     Route: 048
     Dates: start: 20060711, end: 20060814
  3. DIANETTE [Concomitant]
     Indication: CONTRACEPTION
     Dosage: 1 D/F, DAILY (1/D)
     Route: 048
     Dates: start: 20050101
  4. CO-DYDRAMOL [Concomitant]
     Indication: ANALGESIA
     Route: 048
     Dates: start: 20060809, end: 20060811

REACTIONS (4)
  - AKATHISIA [None]
  - INTENTIONAL DRUG MISUSE [None]
  - PRURITUS GENERALISED [None]
  - SELF-INJURIOUS IDEATION [None]
